FAERS Safety Report 17290261 (Version 5)
Quarter: 2020Q1

REPORT INFORMATION
  Report Type: Spontaneous
  Country: US (occurrence: US)
  Receive Date: 20200120
  Receipt Date: 20200302
  Transmission Date: 20200409
  Serious: Yes (Other)
  Sender: FDA-Public Use
  Company Number: US-AMGEN INC.-USASP2020006197

PATIENT
  Age: 38 Year
  Sex: Female

DRUGS (4)
  1. ACYCLOVIR [ACICLOVIR] [Concomitant]
     Active Substance: ACYCLOVIR
     Dosage: UNK
  2. PANTOPRAZOLE [Concomitant]
     Active Substance: PANTOPRAZOLE
     Dosage: UNK
  3. AIMOVIG [Suspect]
     Active Substance: ERENUMAB-AOOE
     Indication: MIGRAINE
     Dosage: 140 MILLIGRAM, QMO (ONE INJECTION)
     Route: 065
     Dates: start: 201912, end: 201912
  4. HUMIRA [Concomitant]
     Active Substance: ADALIMUMAB
     Dosage: UNK

REACTIONS (12)
  - Cognitive disorder [Recovering/Resolving]
  - Gait disturbance [Not Recovered/Not Resolved]
  - Hypersensitivity [Unknown]
  - Dizziness [Unknown]
  - Muscle spasms [Not Recovered/Not Resolved]
  - Dyskinesia [Not Recovered/Not Resolved]
  - Impaired driving ability [Not Recovered/Not Resolved]
  - Fall [Not Recovered/Not Resolved]
  - Tremor [Not Recovered/Not Resolved]
  - Vision blurred [Unknown]
  - Peripheral swelling [Unknown]
  - Urticaria [Recovering/Resolving]

NARRATIVE: CASE EVENT DATE: 201912
